FAERS Safety Report 6631370-1 (Version None)
Quarter: 2010Q1

REPORT INFORMATION
  Report Type: 
  Country: None (occurrence: None)
  Receive Date: 20100312
  Receipt Date: 20100301
  Transmission Date: 20100710
  Serious: Yes (Other)
  Sender: FDA-Public Use
  Company Number: GB-JNJFOC-20100201793

PATIENT
  Sex: Male
  Weight: 78 kg

DRUGS (6)
  1. REMICADE [Suspect]
     Indication: CROHN'S DISEASE
     Route: 042
  2. REMICADE [Suspect]
     Dosage: 4TH INFUSIONS
     Route: 042
  3. REMICADE [Suspect]
     Route: 042
  4. REMICADE [Suspect]
     Route: 042
  5. AZATHIOPRINE [Concomitant]
     Indication: CROHN'S DISEASE
  6. ASACOL [Concomitant]
     Indication: CROHN'S DISEASE

REACTIONS (5)
  - INFUSION RELATED REACTION [None]
  - LYMPHADENOPATHY [None]
  - NIGHT SWEATS [None]
  - RASH ERYTHEMATOUS [None]
  - SWELLING FACE [None]
